FAERS Safety Report 7183099-1 (Version None)
Quarter: 2010Q4

REPORT INFORMATION
  Report Type: 
  Country: None (occurrence: None)
  Receive Date: 20101222
  Receipt Date: 20101213
  Transmission Date: 20110411
  Serious: Yes (Hospitalization, Other)
  Sender: FDA-Public Use
  Company Number: JP-JNJFOC-20101002321

PATIENT
  Age: 65 Year
  Sex: Female
  Weight: 45 kg

DRUGS (6)
  1. ITRIZOLE [Suspect]
     Indication: ORAL CANDIDIASIS
     Route: 048
  2. ACINON [Concomitant]
     Route: 048
  3. MUCOSTA [Concomitant]
     Route: 048
  4. PURSENNID [Concomitant]
     Route: 048
  5. LIPITOR [Concomitant]
     Route: 048
  6. AMOBAN [Concomitant]
     Route: 048

REACTIONS (7)
  - ABDOMINAL PAIN UPPER [None]
  - FLUSHING [None]
  - LOSS OF CONSCIOUSNESS [None]
  - PRURITUS [None]
  - PYREXIA [None]
  - RASH [None]
  - RASH MACULAR [None]
